FAERS Safety Report 4329939-2 (Version None)
Quarter: 2004Q1

REPORT INFORMATION
  Report Type: 
  Country: None (occurrence: None)
  Receive Date: 20040329
  Receipt Date: 20040322
  Transmission Date: 20041129
  Serious: No
  Sender: FDA-Public Use
  Company Number: 2004UW05496

PATIENT
  Age: 75 Year
  Sex: Female

DRUGS (2)
  1. TENORMIN [Suspect]
     Indication: HYPERTENSION
     Dosage: 50 MG QD PO
     Route: 048
  2. BETOPTIC [Concomitant]

REACTIONS (4)
  - ANEURYSM RUPTURED [None]
  - BLINDNESS UNILATERAL [None]
  - NERVOUSNESS [None]
  - RETINAL MICROANEURYSMS [None]
